FAERS Safety Report 23727897 (Version 1)
Quarter: 2024Q2

REPORT INFORMATION
  Report Type: Spontaneous
  Country: CA (occurrence: CA)
  Receive Date: 20240410
  Receipt Date: 20240410
  Transmission Date: 20240716
  Serious: Yes (Death)
  Sender: FDA-Public Use
  Company Number: CA-TEVA-VS-3179950

PATIENT

DRUGS (5)
  1. BENDAMUSTINE HYDROCHLORIDE [Suspect]
     Active Substance: BENDAMUSTINE HYDROCHLORIDE
     Indication: Stem cell transplant
     Dosage: TIME INTERVAL: CYCLICAL
     Route: 065
  2. CYTARABINE [Suspect]
     Active Substance: CYTARABINE
     Indication: Stem cell transplant
     Dosage: POWDER FOR SOLUTION INTRATHECAL
     Route: 065
  3. MELPHALAN [Suspect]
     Active Substance: MELPHALAN
     Indication: Stem cell transplant
     Dosage: TIME INTERVAL: CYCLICAL
     Route: 065
  4. ETOPOSIDE [Suspect]
     Active Substance: ETOPOSIDE
     Indication: Stem cell transplant
     Route: 065
  5. GRANULOCYTE COLONY-STIMULATING FACTOR NOS [Suspect]
     Active Substance: GRANULOCYTE COLONY-STIMULATING FACTOR NOS
     Indication: Stem cell transplant
     Dosage: TIME INTERVAL: CYCLICAL
     Route: 065

REACTIONS (1)
  - Infection [Fatal]
